FAERS Safety Report 7784477-X (Version None)
Quarter: 2011Q3

REPORT INFORMATION
  Report Type: 
  Country: None (occurrence: None)
  Receive Date: 20110928
  Receipt Date: 20110922
  Transmission Date: 20111222
  Serious: Yes (Life-Threatening, Hospitalization, Other)
  Sender: FDA-Public Use
  Company Number: GXKR2011DE02896

PATIENT
  Age: 72 Year
  Sex: Female
  Weight: 57 kg

DRUGS (5)
  1. OMEPRAZOLE [Suspect]
     Dosage: 20 MG, QW3
     Dates: start: 20060101, end: 20110628
  2. IRBESARTAN AND HYDROCHLOROTHIAZIDE [Concomitant]
     Dosage: 1 DF, QD
     Route: 048
     Dates: start: 20060101, end: 20110530
  3. OMEPRAZOLE [Suspect]
     Dosage: 20 MG, QW3
     Route: 048
     Dates: start: 20060101, end: 20110628
  4. AMLODIPIN 1A PHARMA [Suspect]
     Indication: HYPERTENSION
     Dosage: 5 MG, QD
     Route: 048
     Dates: start: 20110301, end: 20110530
  5. SIMVASTATIN [Concomitant]
     Dosage: 5 MG, QD
     Route: 048
     Dates: start: 20060101, end: 20110530

REACTIONS (4)
  - RENAL FAILURE ACUTE [None]
  - MALAISE [None]
  - PYREXIA [None]
  - TUBULOINTERSTITIAL NEPHRITIS [None]
